FAERS Safety Report 10626728 (Version 2)
Quarter: 2014Q4

REPORT INFORMATION
  Report Type: Spontaneous
  Country: ES (occurrence: ES)
  Receive Date: 20141204
  Receipt Date: 20141204
  Transmission Date: 20150529
  Serious: Yes (Hospitalization, Other)
  Sender: FDA-Public Use
  Company Number: ES-ELI_LILLY_AND_COMPANY-ES201409007953

PATIENT
  Age: 48 Year
  Sex: Female

DRUGS (8)
  1. CDDP [Concomitant]
     Active Substance: CISPLATIN
     Indication: PANCREATIC NEOPLASM
  2. FOLIC ACID. [Concomitant]
     Active Substance: FOLIC ACID
     Dosage: 400 MG, QD
  3. ALIMTA [Suspect]
     Active Substance: PEMETREXED DISODIUM
     Indication: LUNG ADENOCARCINOMA
     Dosage: 500 MG/M2, CYCLICAL
     Route: 065
     Dates: start: 20140509, end: 20140712
  4. ALIMTA [Suspect]
     Active Substance: PEMETREXED DISODIUM
     Indication: PANCREATIC NEOPLASM
     Dosage: 500 MG/M2, CYCLICAL
     Route: 065
     Dates: start: 20140802, end: 20140913
  5. ERYTHROPOETIN [Concomitant]
     Active Substance: ERYTHROPOIETIN
  6. VITAMIN B12 [Concomitant]
     Active Substance: CYANOCOBALAMIN
     Dosage: UNK, EVERY EIGHT WEEKS
  7. CDDP [Concomitant]
     Active Substance: CISPLATIN
     Indication: LUNG ADENOCARCINOMA
     Dosage: UNK
     Dates: start: 20140509, end: 20140712
  8. DEXAMETHASONE. [Concomitant]
     Active Substance: DEXAMETHASONE
     Dosage: UNK, BEFORE, AFTER AND DURING CHEMO

REACTIONS (11)
  - Pancytopenia [Not Recovered/Not Resolved]
  - Aphagia [Unknown]
  - Mucosal inflammation [Recovered/Resolved]
  - Oesophageal candidiasis [Unknown]
  - Oropharyngeal candidiasis [Unknown]
  - Vulvovaginal pruritus [Unknown]
  - Bone marrow toxicity [Recovering/Resolving]
  - Petechiae [Recovered/Resolved]
  - Odynophagia [Unknown]
  - Pyrexia [Recovered/Resolved]
  - Mouth haemorrhage [Recovered/Resolved]

NARRATIVE: CASE EVENT DATE: 20140920
